FAERS Safety Report 20641215 (Version 2)
Quarter: 2022Q2

REPORT INFORMATION
  Report Type: Spontaneous
  Country: AR (occurrence: AR)
  Receive Date: 20220328
  Receipt Date: 20220406
  Transmission Date: 20220721
  Serious: Yes (Other)
  Sender: FDA-Public Use
  Company Number: AR-PFIZER INC-202200426352

PATIENT
  Age: 51 Year
  Sex: Female

DRUGS (1)
  1. ENBREL [Suspect]
     Active Substance: ETANERCEPT
     Indication: Rheumatoid arthritis
     Dosage: 50 MG, WEEKLY (1 DOSE PER WEEK)
     Route: 065
     Dates: start: 20171211

REACTIONS (1)
  - Limb operation [Not Recovered/Not Resolved]

NARRATIVE: CASE EVENT DATE: 20220318
